FAERS Safety Report 7426298-3 (Version None)
Quarter: 2011Q2

REPORT INFORMATION
  Report Type: 
  Country: None (occurrence: None)
  Receive Date: 20110420
  Receipt Date: 20110307
  Transmission Date: 20111010
  Serious: Yes (Hospitalization)
  Sender: FDA-Public Use
  Company Number: A0923040A

PATIENT
  Sex: Female

DRUGS (12)
  1. XELODA [Concomitant]
     Route: 065
  2. AVAPRO [Concomitant]
     Dosage: 300MG PER DAY
     Route: 065
  3. SUPEUDOL [Concomitant]
     Dosage: 5MG AS REQUIRED
     Route: 065
  4. APO-TRIAZIDE [Concomitant]
     Route: 065
  5. LYRICA [Concomitant]
     Dosage: 75MG TWICE PER DAY
     Route: 065
  6. EFFEXOR [Concomitant]
     Dosage: 150MG PER DAY
     Route: 065
  7. OXAZEPAM [Concomitant]
     Dosage: 30MG AT NIGHT
     Route: 065
  8. TYKERB [Suspect]
     Indication: BREAST CANCER METASTATIC
     Dosage: 1250MG PER DAY
     Route: 048
     Dates: start: 20110212
  9. AMLODIPINE [Concomitant]
     Dosage: 7.5MG PER DAY
     Route: 065
  10. CELEBREX [Concomitant]
     Dosage: 200MG PER DAY
     Route: 065
  11. OXYCONTIN [Concomitant]
     Dosage: 30MG TWICE PER DAY
     Route: 065
  12. RADIATION [Concomitant]
     Route: 065

REACTIONS (3)
  - DEHYDRATION [None]
  - NAUSEA [None]
  - VOMITING [None]
